FAERS Safety Report 8131998-6 (Version None)
Quarter: 2012Q1

REPORT INFORMATION
  Report Type: 
  Country: None (occurrence: None)
  Receive Date: 20120208
  Receipt Date: 20120130
  Transmission Date: 20120608
  Serious: No
  Sender: FDA-Public Use
  Company Number: 2012MA001373

PATIENT
  Age: 71 Year
  Sex: Female

DRUGS (8)
  1. LEVETIRACETAM [Suspect]
     Indication: COMPLEX PARTIAL SEIZURES
     Dosage: 2.5 G, BID, IV
     Route: 042
  2. DEXAMETHASONE [Concomitant]
  3. WARFARIN [Suspect]
     Indication: DEEP VEIN THROMBOSIS
     Dosage: 0.75 MG, NGT
  4. VALPROIC ACID [Suspect]
     Dosage: 250 MG, Q6H, HGT
  5. TEMOZOLOMIDE [Concomitant]
  6. MIDAZOLAM [Suspect]
     Indication: COMPLEX PARTIAL SEIZURES
     Dosage: 3 MG, X1; IV
     Route: 042
  7. PRAVASTATIN [Concomitant]
  8. FISH OIL [Concomitant]

REACTIONS (4)
  - DRUG INTERACTION [None]
  - INTERNATIONAL NORMALISED RATIO INCREASED [None]
  - DRUG INEFFECTIVE [None]
  - ACTIVATED PARTIAL THROMBOPLASTIN TIME PROLONGED [None]
